FAERS Safety Report 6540100-3 (Version None)
Quarter: 2010Q1

REPORT INFORMATION
  Report Type: 
  Country: None (occurrence: None)
  Receive Date: 20100115
  Receipt Date: 20100104
  Transmission Date: 20100710
  Serious: Yes (Other)
  Sender: FDA-Public Use
  Company Number: SE-SANOFI-AVENTIS-2010SA001939

PATIENT
  Sex: Male

DRUGS (2)
  1. LEUPRORELIN ACETATE [Suspect]
     Indication: PROSTATE CANCER
     Route: 058
     Dates: start: 20080722, end: 20080722
  2. LEUPRORELIN ACETATE [Suspect]
     Route: 058
     Dates: start: 20090101, end: 20090101

REACTIONS (1)
  - BLOOD TESTOSTERONE INCREASED [None]
